FAERS Safety Report 9718660 (Version 2)
Quarter: 2013Q4

REPORT INFORMATION
  Report Type: Not Available
  Country: US (occurrence: US)
  Receive Date: 20131125
  Receipt Date: 20131125
  Transmission Date: 20140711
  Serious: Yes (Hospitalization)
  Sender: FDA-Public Use
  Company Number: US-H. LUNDBECK A/S-DKLU1083736

PATIENT
  Sex: Female

DRUGS (9)
  1. SABRIL (TABLET) [Suspect]
     Indication: CONVULSION NEONATAL
     Route: 048
     Dates: start: 20120717
  2. SABRIL (TABLET) [Suspect]
     Indication: ENCEPHALOPATHY
     Dates: end: 20120728
  3. ONFI [Suspect]
     Indication: CONVULSION
     Dates: start: 20120720, end: 20120808
  4. KLONOPIN [Suspect]
     Indication: PRODUCT USED FOR UNKNOWN INDICATION
     Dates: end: 20120719
  5. PHENOBARBITAL [Suspect]
     Indication: CONVULSION
     Dates: end: 20120720
  6. LORAZEPAM [Concomitant]
     Indication: PRODUCT USED FOR UNKNOWN INDICATION
  7. KEPPRA [Concomitant]
     Indication: PRODUCT USED FOR UNKNOWN INDICATION
     Dates: end: 20120719
  8. TOPAMAX [Concomitant]
     Indication: CONVULSION
  9. FOLINIC ACID [Concomitant]
     Indication: PRODUCT USED FOR UNKNOWN INDICATION
     Dates: end: 20120721

REACTIONS (2)
  - Convulsion [Recovered/Resolved]
  - Drug ineffective [Unknown]
